FAERS Safety Report 4613304-4 (Version None)
Quarter: 2005Q1

REPORT INFORMATION
  Report Type: 
  Country: None (occurrence: None)
  Receive Date: 20050315
  Receipt Date: 20050311
  Transmission Date: 20050727
  Serious: Yes (Hospitalization)
  Sender: FDA-Public Use
  Company Number: 200510009BFR

PATIENT
  Age: 76 Year
  Sex: Female
  Weight: 50 kg

DRUGS (8)
  1. CIPROFLOXACIN HCL [Suspect]
     Indication: BRONCHOPNEUMONIA
     Dosage: ORAL
     Route: 048
     Dates: start: 20040802, end: 20040812
  2. PYOSTACINE (PRISTINAMYCIN) [Suspect]
     Dosage: 2 G, TOTAL DAILY, ORAL
     Route: 048
     Dates: start: 20040901, end: 20040904
  3. AUGMENTIN '125' [Suspect]
     Indication: BRONCHOPNEUMONIA
     Dosage: 3 G, TOTAL DAILY, ORAL
     Route: 048
     Dates: start: 20040802, end: 20040812
  4. XYZALL [Concomitant]
  5. ATARAX [Concomitant]
  6. BIRODOGYL [Concomitant]
  7. FLANID (TIAPROFENID ACID) [Concomitant]
  8. ORELOX [Concomitant]

REACTIONS (5)
  - BLOOD LACTATE DEHYDROGENASE INCREASED [None]
  - DERMATITIS EXFOLIATIVE [None]
  - LYMPHADENITIS [None]
  - OEDEMA PERIPHERAL [None]
  - RASH ERYTHEMATOUS [None]
